FAERS Safety Report 5213046-0 (Version None)
Quarter: 2007Q1

REPORT INFORMATION
  Report Type: 
  Country: None (occurrence: None)
  Receive Date: 20070117
  Receipt Date: 20070103
  Transmission Date: 20070707
  Serious: Yes (Other)
  Sender: FDA-Public Use
  Company Number: HECT-10241

PATIENT
  Age: 51 Year
  Sex: Male
  Weight: 83 kg

DRUGS (2)
  1. HECTOROL [Suspect]
     Indication: HYPERPARATHYROIDISM SECONDARY
     Dosage: 6 MCG 3X/W IV
     Route: 042
     Dates: start: 20060617, end: 20060915
  2. SENSIPAR (CINACALCET HYDROCHLORIDE) [Concomitant]

REACTIONS (2)
  - BLOOD PARATHYROID HORMONE INCREASED [None]
  - DRUG INEFFECTIVE [None]
